FAERS Safety Report 24234574 (Version 2)
Quarter: 2024Q3

REPORT INFORMATION
  Report Type: Spontaneous
  Country: US (occurrence: US)
  Receive Date: 20240821
  Receipt Date: 20240827
  Transmission Date: 20241017
  Serious: No
  Sender: PFIZER
  Company Number: US-PFIZER INC-202400239255

PATIENT
  Sex: Female

DRUGS (1)
  1. DUAVEE [Suspect]
     Active Substance: BAZEDOXIFENE ACETATE\ESTROGENS, CONJUGATED

REACTIONS (4)
  - Therapeutic response unexpected [Unknown]
  - Therapeutic product effect decreased [Unknown]
  - Product storage error [Unknown]
  - Product administration error [Unknown]
